FAERS Safety Report 9269456 (Version 1)
Quarter: 2013Q2

REPORT INFORMATION
  Report Type: Spontaneous
  Country: KR (occurrence: KR)
  Receive Date: 20130503
  Receipt Date: 20130503
  Transmission Date: 20140414
  Serious: Yes (Hospitalization)
  Sender: FDA-Public Use
  Company Number: KR-JNJFOC-20130414594

PATIENT
  Sex: 0

DRUGS (1)
  1. TYLENOL SUSPENSION LIQUID [Suspect]
     Indication: PYREXIA
     Route: 048

REACTIONS (1)
  - Body temperature decreased [Recovered/Resolved]
